FAERS Safety Report 15719721 (Version 1)
Quarter: 2018Q4

REPORT INFORMATION
  Report Type: Spontaneous
  Country: US (occurrence: US)
  Receive Date: 20181213
  Receipt Date: 20181213
  Transmission Date: 20190205
  Serious: No
  Sender: FDA-Public Use
  Company Number: US-ASTRAZENECA-2018SF52707

PATIENT
  Sex: Female

DRUGS (2)
  1. SYMBICORT [Suspect]
     Active Substance: BUDESONIDE\FORMOTEROL FUMARATE DIHYDRATE
     Indication: EMPHYSEMA
     Dosage: 160/4.5 UG, 2 PUFFS TWO TIMES A DAY
     Route: 055
  2. SYMBICORT [Suspect]
     Active Substance: BUDESONIDE\FORMOTEROL FUMARATE DIHYDRATE
     Indication: CHRONIC OBSTRUCTIVE PULMONARY DISEASE
     Dosage: 160/4.5 UG, 2 PUFFS TWO TIMES A DAY
     Route: 055

REACTIONS (10)
  - Wrong technique in device usage process [Unknown]
  - Aortic aneurysm [Unknown]
  - Cardiac failure congestive [Unknown]
  - Wrist deformity [Unknown]
  - Limb discomfort [Unknown]
  - Age-related macular degeneration [Unknown]
  - General physical health deterioration [Unknown]
  - Memory impairment [Unknown]
  - Fracture [Unknown]
  - Intentional device misuse [Unknown]
